FAERS Safety Report 22370388 (Version 1)
Quarter: 2023Q2

REPORT INFORMATION
  Report Type: Spontaneous
  Country: ET (occurrence: ET)
  Receive Date: 20230526
  Receipt Date: 20230526
  Transmission Date: 20230722
  Serious: Yes (Life-Threatening)
  Sender: FDA-Public Use
  Company Number: ET-BAUSCH-BL-2023-007590

PATIENT
  Sex: Male

DRUGS (8)
  1. ENALAPRIL [Suspect]
     Active Substance: ENALAPRIL
     Indication: Hypertension
     Route: 065
  2. HYDROCHLOROTHIAZIDE [Suspect]
     Active Substance: HYDROCHLOROTHIAZIDE
     Indication: Hypertension
     Route: 065
  3. METFORMIN [Concomitant]
     Active Substance: METFORMIN HYDROCHLORIDE
     Indication: Product used for unknown indication
  4. GLYBURIDE [Concomitant]
     Active Substance: GLYBURIDE
     Indication: Product used for unknown indication
  5. FERROUS SULFATE [Concomitant]
     Active Substance: FERROUS SULFATE
     Indication: Product used for unknown indication
  6. OMEPRAZOLE [Concomitant]
     Active Substance: OMEPRAZOLE
     Indication: Peptic ulcer helicobacter
  7. AMOXICILLIN [Concomitant]
     Active Substance: AMOXICILLIN
     Indication: Peptic ulcer helicobacter
  8. CLARITHROMYCIN [Concomitant]
     Active Substance: CLARITHROMYCIN
     Indication: Peptic ulcer helicobacter

REACTIONS (1)
  - Product dose omission in error [Unknown]
